FAERS Safety Report 9664070 (Version 1)
Quarter: 2013Q4

REPORT INFORMATION
  Report Type: Spontaneous
  Country: FR (occurrence: FR)
  Receive Date: 20131101
  Receipt Date: 20131101
  Transmission Date: 20140711
  Serious: Yes (Hospitalization, Other)
  Sender: FDA-Public Use
  Company Number: FR-PFIZER INC-2013306863

PATIENT
  Age: 22 Year
  Sex: Female

DRUGS (2)
  1. RHINADVIL [Suspect]
     Dosage: UNK
     Route: 048
     Dates: start: 20130926, end: 20130929
  2. PARACETAMOL [Suspect]
     Dosage: UNK
     Route: 048
     Dates: start: 201309

REACTIONS (2)
  - Peritonsillar abscess [Recovered/Resolved]
  - Lymphadenitis [Unknown]
